FAERS Safety Report 6870825-1 (Version None)
Quarter: 2010Q3

REPORT INFORMATION
  Report Type: 
  Country: None (occurrence: None)
  Receive Date: 20100723
  Receipt Date: 20100712
  Transmission Date: 20110219
  Serious: Yes (Other)
  Sender: FDA-Public Use
  Company Number: JP-ELI_LILLY_AND_COMPANY-JP201007002442

PATIENT
  Age: 59 Year
  Sex: Male

DRUGS (5)
  1. ZYPREXA [Suspect]
     Indication: SCHIZOPHRENIA
     Dosage: 5 MG, DAILY (1/D)
     Route: 048
     Dates: start: 20100118, end: 20100507
  2. ABILIFY [Concomitant]
     Dosage: 12 MG, DAILY (1/D)
     Route: 048
  3. ABILIFY [Concomitant]
     Dosage: 24 MG, DAILY (1/D)
     Route: 048
  4. ABILIFY [Concomitant]
     Dosage: 18 MG, DAILY (1/D)
     Route: 048
     Dates: start: 20090202
  5. HIRNAMIN [Concomitant]
     Dosage: 15 MG, DAILY (1/D)
     Route: 048
     Dates: start: 20080101

REACTIONS (1)
  - WHITE BLOOD CELL COUNT DECREASED [None]
